FAERS Safety Report 8817685 (Version 1)
Quarter: 2012Q4

REPORT INFORMATION
  Report Type: Report from Study
  Country: EG (occurrence: EG)
  Receive Date: 20121001
  Receipt Date: 20121001
  Transmission Date: 20130627
  Serious: Yes (Other)
  Sender: FDA-Public Use
  Company Number: PHHY2012EG008792

PATIENT
  Age: 52 Year
  Sex: Female
  Weight: 72 kg

DRUGS (4)
  1. UNSPECIFIED INGREDIENT [Suspect]
     Indication: BLOOD PRESSURE INADEQUATELY CONTROLLED
     Dosage: 160 mg val/ 5 mg aml
     Route: 048
     Dates: start: 20111222
  2. CATAFLAM [Concomitant]
     Indication: MUSCULOSKELETAL PAIN
     Dosage: 50 mg, UNK
     Dates: start: 2010
  3. CATAFLAM [Concomitant]
     Indication: NECK PAIN
  4. CATAFLAM [Concomitant]
     Indication: SPINAL OSTEOARTHRITIS

REACTIONS (1)
  - Chest discomfort [Recovered/Resolved]
